FAERS Safety Report 22167198 (Version 1)
Quarter: 2023Q2

REPORT INFORMATION
  Report Type: Spontaneous
  Country: AU (occurrence: AU)
  Receive Date: 20230403
  Receipt Date: 20230403
  Transmission Date: 20230722
  Serious: Yes (Hospitalization, Other)
  Sender: FDA-Public Use
  Company Number: AU-AMGEN-AUSSP2023049681

PATIENT
  Age: 67 Year
  Sex: Female

DRUGS (1)
  1. REPATHA [Suspect]
     Active Substance: EVOLOCUMAB
     Indication: Low density lipoprotein increased
     Dosage: 140 UNK
     Route: 065

REACTIONS (7)
  - Transient ischaemic attack [Unknown]
  - Alopecia [Unknown]
  - Hair texture abnormal [Unknown]
  - Blood pressure increased [Unknown]
  - Dizziness [Unknown]
  - Influenza like illness [Unknown]
  - Arthralgia [Unknown]
